FAERS Safety Report 16924794 (Version 2)
Quarter: 2019Q4

REPORT INFORMATION
  Report Type: Spontaneous
  Country: US (occurrence: US)
  Receive Date: 20191016
  Receipt Date: 20191106
  Transmission Date: 20200122
  Serious: No
  Sender: FDA-Public Use
  Company Number: US-PFIZER INC-2019025790

PATIENT
  Age: 24 Year
  Sex: Female

DRUGS (1)
  1. XELJANZ XR [Suspect]
     Active Substance: TOFACITINIB CITRATE
     Indication: RHEUMATOID ARTHRITIS
     Dosage: 11 MG, ONCE DAILY
     Route: 048

REACTIONS (7)
  - Mouth ulceration [Unknown]
  - Protein urine present [Unknown]
  - Eye infection [Unknown]
  - Tongue ulceration [Unknown]
  - Upper respiratory tract infection [Unknown]
  - Cystitis [Unknown]
  - Intentional product misuse [Unknown]
